FAERS Safety Report 7760995-5 (Version None)
Quarter: 2011Q3

REPORT INFORMATION
  Report Type: 
  Country: None (occurrence: None)
  Receive Date: 20110920
  Receipt Date: 20110907
  Transmission Date: 20111222
  Serious: Yes (Death, Hospitalization)
  Sender: FDA-Public Use
  Company Number: US-BIOGENIDEC-2011BI034543

PATIENT
  Age: 62 Year
  Sex: Female

DRUGS (14)
  1. FLEXERIL [Concomitant]
     Route: 048
  2. TYSABRI [Suspect]
     Indication: MULTIPLE SCLEROSIS
     Route: 042
     Dates: start: 20070926, end: 20110720
  3. PHENERGAN HCL [Concomitant]
     Indication: NAUSEA
     Route: 048
  4. AMBIEN CR [Concomitant]
     Indication: INSOMNIA
  5. CITALOPRAM HYDROBROMIDE [Concomitant]
     Route: 048
  6. ZANAFLEX [Concomitant]
     Route: 048
  7. MORPHINE SULFATE [Concomitant]
     Indication: PAIN
     Route: 048
  8. MORPHINE SULFATE [Concomitant]
     Route: 048
  9. MORPHINE SULFATE [Concomitant]
     Indication: BREAKTHROUGH PAIN
     Route: 048
  10. IBUPROFEN [Concomitant]
     Route: 048
  11. MULTI-VITAMIN [Concomitant]
     Route: 048
  12. KLOR-CON [Concomitant]
     Route: 048
  13. FUROSEMIDE [Concomitant]
     Route: 048
  14. LYRICA [Concomitant]
     Route: 048

REACTIONS (3)
  - DECUBITUS ULCER [None]
  - DEATH [None]
  - MUSCLE SPASMS [None]
